FAERS Safety Report 5597075-3 (Version None)
Quarter: 2008Q1

REPORT INFORMATION
  Report Type: 
  Country: None (occurrence: None)
  Receive Date: 20080121
  Receipt Date: 20080117
  Transmission Date: 20080703
  Serious: Yes (Death, Life-Threatening, Hospitalization, Other)
  Sender: FDA-Public Use
  Company Number: PHBS2007BR20916

PATIENT
  Age: 76 Year
  Sex: Male
  Weight: 70 kg

DRUGS (9)
  1. STALEVO 100 [Suspect]
     Indication: PARKINSON'S DISEASE
     Dosage: 50 MG, QD
     Route: 048
     Dates: start: 20050101
  2. STALEVO 100 [Suspect]
     Dosage: 50 MG, BID
     Route: 048
  3. STALEVO 100 [Suspect]
     Dosage: 100 MG, Q8H
     Route: 048
     Dates: start: 20071101
  4. STALEVO 100 [Suspect]
     Dosage: 150 MG, BID
     Route: 048
     Dates: start: 20071206
  5. INSULIN HUMAN [Concomitant]
     Indication: DIABETES MELLITUS
     Dosage: 40 IU, QD
     Route: 065
  6. INSULIN HUMAN [Concomitant]
     Dosage: 20 IU, QD
     Route: 065
  7. OMEPRAZOLE [Concomitant]
     Indication: GASTRITIS
     Dosage: 20 MG/D
     Route: 048
  8. PROLOPA [Concomitant]
     Route: 065
  9. BACTRIM [Suspect]
     Indication: URINARY TRACT INFECTION
     Dosage: 1 TAB/DAY
     Dates: end: 20071115

REACTIONS (9)
  - CONVULSION [None]
  - DISEASE PROGRESSION [None]
  - DYSKINESIA [None]
  - FEELING ABNORMAL [None]
  - HYPERVENTILATION [None]
  - PERICARDIAL DISEASE [None]
  - PULMONARY EMBOLISM [None]
  - SKIN DISCOLOURATION [None]
  - URINARY TRACT INFECTION [None]
